FAERS Safety Report 11929501 (Version 1)
Quarter: 2016Q1

REPORT INFORMATION
  Report Type: Spontaneous
  Country: US (occurrence: US)
  Receive Date: 20160120
  Receipt Date: 20160120
  Transmission Date: 20160526
  Serious: No
  Sender: FDA-Public Use
  Company Number: US-009507513-1601USA005902

PATIENT
  Age: 55 Year
  Sex: Female

DRUGS (2)
  1. LOVENOX [Concomitant]
     Active Substance: ENOXAPARIN SODIUM
     Dosage: UNK
  2. KEYTRUDA [Suspect]
     Active Substance: PEMBROLIZUMAB
     Indication: NON-SMALL CELL LUNG CANCER
     Dosage: 140 MG, FREQUENCY UNSPECIFIED
     Route: 042
     Dates: start: 20151228

REACTIONS (3)
  - Peripheral swelling [Unknown]
  - Recall phenomenon [Unknown]
  - Product use issue [Unknown]

NARRATIVE: CASE EVENT DATE: 20151228
